FAERS Safety Report 10872722 (Version 2)
Quarter: 2015Q1

REPORT INFORMATION
  Report Type: Report from Study
  Country: CO (occurrence: CO)
  Receive Date: 20150227
  Receipt Date: 20150305
  Transmission Date: 20150721
  Serious: Yes (Death, Other)
  Sender: FDA-Public Use
  Company Number: CO-ROCHE-1545857

PATIENT
  Age: 82 Year
  Sex: Female
  Weight: 70 kg

DRUGS (6)
  1. HYDROCHLOROTHIAZIDE. [Concomitant]
     Active Substance: HYDROCHLOROTHIAZIDE
  2. ASPIRINA INFANTIL [Concomitant]
  3. CHLORHEXIDINE GLUCONATE/PHENYLEPHRINE HYDROCHLORIDE [Concomitant]
  4. LUCENTIS [Suspect]
     Active Substance: RANIBIZUMAB
     Indication: RETINAL DISORDER
     Route: 050
     Dates: start: 2013
  5. LOSARTAN [Concomitant]
     Active Substance: LOSARTAN
  6. LEVOTHYROXINE [Concomitant]
     Active Substance: LEVOTHYROXINE

REACTIONS (3)
  - Spinal deformity [Unknown]
  - Cardio-respiratory arrest [Fatal]
  - Off label use [Unknown]
